FAERS Safety Report 9132611 (Version 1)
Quarter: 2013Q1

REPORT INFORMATION
  Report Type: Spontaneous
  Country: US (occurrence: US)
  Receive Date: 20130301
  Receipt Date: 20130301
  Transmission Date: 20140127
  Serious: Yes (Other)
  Sender: FDA-Public Use
  Company Number: US-ROCHE-1192502

PATIENT
  Age: 0 Year
  Sex: Male
  Weight: 3 kg

DRUGS (7)
  1. CYTOVENE IV [Suspect]
     Indication: CONGENITAL CYTOMEGALOVIRUS INFECTION
     Route: 042
     Dates: start: 20130202, end: 20130218
  2. VALCYTE [Suspect]
     Indication: CONGENITAL CYTOMEGALOVIRUS INFECTION
     Route: 065
     Dates: start: 20130218
  3. TPN [Suspect]
     Indication: CONGENITAL CYTOMEGALOVIRUS INFECTION
     Route: 065
     Dates: start: 20130201, end: 20130217
  4. PHENOBARBITAL [Concomitant]
     Indication: CONVULSION
     Route: 042
     Dates: start: 20130202
  5. PHYTONADIONE [Concomitant]
     Route: 042
     Dates: start: 20130202
  6. PHYTONADIONE [Concomitant]
     Route: 042
     Dates: start: 20130215
  7. PHYTONADIONE [Concomitant]
     Route: 042
     Dates: start: 20130217

REACTIONS (3)
  - Hepatic enzyme increased [Not Recovered/Not Resolved]
  - Aspartate aminotransferase increased [None]
  - Alanine aminotransferase increased [None]
